FAERS Safety Report 19098700 (Version 8)
Quarter: 2023Q1

REPORT INFORMATION
  Report Type: Spontaneous
  Country: HU (occurrence: HU)
  Receive Date: 20210406
  Receipt Date: 20230124
  Transmission Date: 20230418
  Serious: Yes (Hospitalization, Other)
  Sender: FDA-Public Use
  Company Number: NVSC2021HU071285

PATIENT
  Age: 2 Year
  Sex: Male
  Weight: 9.6 kg

DRUGS (6)
  1. ZOLGENSMA [Suspect]
     Active Substance: ONASEMNOGENE ABEPARVOVEC-XIOI
     Indication: Spinal muscular atrophy
     Dosage: UNK UNK, ONCE/SINGLE (6X 8.3 ML +1X5.5 ML)
     Route: 042
     Dates: start: 20210202, end: 20210202
  2. ZOLGENSMA [Suspect]
     Active Substance: ONASEMNOGENE ABEPARVOVEC-XIOI
     Dosage: UNK UNK, ONCE/SINGLE (1X5.5 ML)
     Route: 042
     Dates: start: 20210202, end: 20210202
  3. ZOLGENSMA [Suspect]
     Active Substance: ONASEMNOGENE ABEPARVOVEC-XIOI
     Dosage: 55.3 MG, ONCE/SINGLE
     Route: 065
     Dates: start: 20210202
  4. FAMOTIDINE [Concomitant]
     Active Substance: FAMOTIDINE
     Indication: Gastrointestinal disorder prophylaxis
     Dosage: 0.5 MG/KG, QD
     Route: 048
     Dates: start: 20210201
  5. NUSINERSEN [Concomitant]
     Active Substance: NUSINERSEN
     Indication: Product used for unknown indication
     Dosage: 12 MG
     Route: 065
     Dates: start: 20190319
  6. VIGANTOL [Concomitant]
     Indication: Product used for unknown indication
     Dosage: 2 DRP, QD
     Route: 065
     Dates: start: 20210201

REACTIONS (22)
  - Hepatic enzyme increased [Recovering/Resolving]
  - Aspartate aminotransferase increased [Recovering/Resolving]
  - Alanine aminotransferase increased [Recovering/Resolving]
  - Decreased appetite [Unknown]
  - Lethargy [Unknown]
  - Pneumonia [Unknown]
  - Thrombocytopenia [Recovered/Resolved]
  - Thrombocytopenia [Not Recovered/Not Resolved]
  - Glycosuria [Unknown]
  - Blood lactate dehydrogenase increased [Unknown]
  - Blood creatinine decreased [Unknown]
  - Urobilinogen urine increased [Unknown]
  - Protein urine present [Unknown]
  - Bowel movement irregularity [Unknown]
  - Blood creatine phosphokinase MB abnormal [Recovered/Resolved]
  - Blood creatine phosphokinase MB abnormal [Unknown]
  - Abdominal pain upper [Unknown]
  - Platelet count decreased [Recovered/Resolved]
  - Troponin increased [Unknown]
  - Fatigue [Unknown]
  - Somnolence [Unknown]
  - Vomiting [Unknown]

NARRATIVE: CASE EVENT DATE: 20210209
